FAERS Safety Report 8906275 (Version 1)
Quarter: 2012Q4

REPORT INFORMATION
  Report Type: Spontaneous
  Country: CA (occurrence: None)
  Receive Date: 20121107
  Receipt Date: 20121107
  Transmission Date: 20130627
  Serious: Yes (Disabling)
  Sender: FDA-Public Use
  Company Number: 2012000238

PATIENT
  Age: 75 Year
  Sex: Female

DRUGS (4)
  1. ACEON [Suspect]
     Indication: PRODUCT USED FOR UNKNOWN INDICATION
     Route: 048
     Dates: start: 201105, end: 201106
  2. ASA (ASA) [Concomitant]
  3. FOLIC ACID (FOLIC ACID) [Concomitant]
  4. LIPID MODIFYING AGENTS [Concomitant]

REACTIONS (5)
  - Dyspnoea [None]
  - Movement disorder [None]
  - Neck pain [None]
  - Pain in extremity [None]
  - Arthralgia [None]
